FAERS Safety Report 8977980 (Version 2)
Quarter: 2013Q1

REPORT INFORMATION
  Report Type: Report from Study
  Country: CA (occurrence: CA)
  Receive Date: 20121220
  Receipt Date: 20130320
  Transmission Date: 20140127
  Serious: Yes (Hospitalization, Other)
  Sender: FDA-Public Use
  Company Number: CA-ROCHE-1168301

PATIENT
  Sex: Male

DRUGS (8)
  1. RITUXAN [Suspect]
     Indication: CRYOGLOBULINAEMIA
     Route: 042
     Dates: start: 20120723
  2. PREDNISONE [Concomitant]
  3. CELEBREX [Concomitant]
  4. ATORVASTATIN CALCIUM [Concomitant]
  5. ZYLOPRIM [Concomitant]
  6. LANSOPRAZOLE [Concomitant]
  7. GABAPENTIN [Concomitant]
  8. HYDROMORPHONE [Concomitant]
     Route: 065

REACTIONS (2)
  - Skin ulcer [Not Recovered/Not Resolved]
  - Poor peripheral circulation [Unknown]
